FAERS Safety Report 21752843 (Version 1)
Quarter: 2022Q4

REPORT INFORMATION
  Report Type: Spontaneous
  Country: US (occurrence: None)
  Receive Date: 20221219
  Receipt Date: 20221219
  Transmission Date: 20230112
  Serious: Yes (Hospitalization)
  Sender: FDA-Public Use
  Company Number: None

PATIENT
  Sex: Female

DRUGS (2)
  1. VELETRI [Suspect]
     Active Substance: EPOPROSTENOL
     Indication: Pulmonary arterial hypertension
     Route: 042
     Dates: start: 20220321
  2. CASSETTE MEDI RESERVOIR [Concomitant]

REACTIONS (12)
  - Recalled product administered [None]
  - Dyspnoea [None]
  - Loss of consciousness [None]
  - Oxygen saturation decreased [None]
  - Headache [None]
  - Pain in jaw [None]
  - Nausea [None]
  - Diarrhoea [None]
  - Abdominal distension [None]
  - Eructation [None]
  - Illness [None]
  - Fatigue [None]
